FAERS Safety Report 6941896-9 (Version None)
Quarter: 2010Q3

REPORT INFORMATION
  Report Type: 
  Country: None (occurrence: None)
  Receive Date: 20100826
  Receipt Date: 20100820
  Transmission Date: 20110219
  Serious: Yes (Other)
  Sender: FDA-Public Use
  Company Number: US-PFIZER INC-2010093520

PATIENT
  Sex: Female
  Weight: 58.957 kg

DRUGS (2)
  1. CELEBREX [Suspect]
     Indication: PLICA SYNDROME
     Dosage: 200 MG, DAILY
     Route: 048
     Dates: start: 20100719
  2. ZYRTEC [Concomitant]
     Indication: HYPERSENSITIVITY
     Dosage: UNK, AS NEEDED

REACTIONS (5)
  - ABDOMINAL PAIN [None]
  - ARTHRALGIA [None]
  - BACK PAIN [None]
  - PRURITUS [None]
  - RASH [None]
